FAERS Safety Report 7668833-6 (Version None)
Quarter: 2011Q3

REPORT INFORMATION
  Report Type: 
  Country: None (occurrence: None)
  Receive Date: 20110808
  Receipt Date: 20110729
  Transmission Date: 20111222
  Serious: Yes (Hospitalization, Other)
  Sender: FDA-Public Use
  Company Number: US-BAYER-201035777NA

PATIENT
  Age: 26 Year
  Sex: Female
  Weight: 79.365 kg

DRUGS (6)
  1. VICODIN [Concomitant]
     Dosage: PRN
     Route: 048
  2. MAALOX [Concomitant]
     Dosage: AS NEEDED
  3. YASMIN [Suspect]
     Dates: start: 20030101, end: 20091211
  4. NAPROXEN (ALEVE) [Concomitant]
     Dosage: AS NEEDED
  5. ACETAMINOPHEN [Concomitant]
     Dosage: AS NEEDED
  6. IBUPROFEN [Concomitant]
     Dosage: AS NEEDED

REACTIONS (3)
  - GALLBLADDER DISORDER [None]
  - CHOLECYSTITIS CHRONIC [None]
  - CHOLELITHIASIS [None]
